FAERS Safety Report 5300279-8 (Version None)
Quarter: 2007Q2

REPORT INFORMATION
  Report Type: 
  Country: None (occurrence: None)
  Receive Date: 20070411
  Receipt Date: 20070402
  Transmission Date: 20071010
  Serious: Yes (Life-Threatening)
  Sender: FDA-Public Use
  Company Number: 154824ISR

PATIENT
  Age: 67 Year
  Sex: Female

DRUGS (1)
  1. CARBOPLATIN [Suspect]
     Indication: OVARIAN CANCER METASTATIC
     Dosage: 450 MG/M2 (450 MG/M2, 1 IN 1 D) INTRAVENOUS (NOT OTHERWISE SPECIFIED)
     Route: 042
     Dates: start: 20070111, end: 20070111

REACTIONS (3)
  - ACUTE MYOCARDIAL INFARCTION [None]
  - CHOKING SENSATION [None]
  - CIRCULATORY COLLAPSE [None]
